FAERS Safety Report 23870546 (Version 1)
Quarter: 2024Q2

REPORT INFORMATION
  Report Type: Other
  Country: CA (occurrence: CA)
  Receive Date: 20240518
  Receipt Date: 20240518
  Transmission Date: 20240716
  Serious: Yes (Other)
  Sender: FDA-Public Use
  Company Number: CA-CELLTRION INC.-2024CA010841

PATIENT

DRUGS (5)
  1. BEVACIZUMAB [Suspect]
     Active Substance: BEVACIZUMAB
     Indication: Hepatocellular carcinoma
     Dosage: 15 MG/KG, 1 EVERY 3 WEEKS
     Route: 042
  2. ATEZOLIZUMAB [Suspect]
     Active Substance: ATEZOLIZUMAB
     Indication: Hepatocellular carcinoma
     Dosage: 1200 MILLIGRAM
     Route: 065
  3. SOVALDI [Concomitant]
     Active Substance: SOFOSBUVIR
     Indication: Hepatitis C
     Route: 065
  4. SPIRONOLACTONE [Concomitant]
     Active Substance: SPIRONOLACTONE
     Indication: Hepatitis C
     Route: 065
  5. VELPATASVIR [Concomitant]
     Active Substance: VELPATASVIR
     Indication: Hepatitis C
     Route: 065

REACTIONS (4)
  - Malignant neoplasm progression [Unknown]
  - Drug effective for unapproved indication [Unknown]
  - Off label use [Unknown]
  - Intentional product use issue [Unknown]
